FAERS Safety Report 5268741-4 (Version None)
Quarter: 2007Q1

REPORT INFORMATION
  Report Type: 
  Country: None (occurrence: None)
  Receive Date: 20070313
  Receipt Date: 20070228
  Transmission Date: 20070707
  Serious: Yes (Death)
  Sender: FDA-Public Use
  Company Number: 200702AGG00595

PATIENT
  Age: 83 Year
  Sex: Male
  Weight: 74 kg

DRUGS (5)
  1. AGGRASTAT [Suspect]
     Indication: CARDIAC ENZYMES INCREASED
     Dosage: INTRAVENOUS (NOT OTHERWISE SPECIFIED)
     Route: 042
     Dates: start: 20070120
  2. ASPIRIN [Concomitant]
  3. CLOPIDOGREL BISULFATE [Concomitant]
  4. HEPARIN [Concomitant]
  5. METFORMIN HCL [Concomitant]

REACTIONS (10)
  - BLOOD GLUCOSE INCREASED [None]
  - BUNDLE BRANCH BLOCK LEFT [None]
  - CHEST PAIN [None]
  - CREATININE RENAL CLEARANCE DECREASED [None]
  - EJECTION FRACTION DECREASED [None]
  - ELECTROCARDIOGRAM ST SEGMENT DEPRESSION [None]
  - HAEMOGLOBIN DECREASED [None]
  - HEART SOUNDS ABNORMAL [None]
  - MICROALBUMINURIA [None]
  - PROTEINURIA [None]
